FAERS Safety Report 7079818-5 (Version None)
Quarter: 2010Q4

REPORT INFORMATION
  Report Type: 
  Country: None (occurrence: None)
  Receive Date: 20101102
  Receipt Date: 20101025
  Transmission Date: 20110411
  Serious: Yes (Death, Hospitalization)
  Sender: FDA-Public Use
  Company Number: US-CELGENEUS-163-20785-10081997

PATIENT
  Sex: Male

DRUGS (6)
  1. THALOMID [Suspect]
     Indication: MULTIPLE MYELOMA
     Route: 048
     Dates: start: 20020401
  2. THALOMID [Suspect]
     Dosage: 150-200MG
     Route: 048
     Dates: start: 20020601
  3. THALOMID [Suspect]
     Dosage: 150-200MG
     Route: 048
     Dates: start: 20050201
  4. THALOMID [Suspect]
     Route: 048
     Dates: start: 20060101
  5. THALOMID [Suspect]
     Route: 048
     Dates: start: 20061101
  6. THALOMID [Suspect]
     Route: 048
     Dates: start: 20100401

REACTIONS (2)
  - MULTIPLE MYELOMA [None]
  - RENAL FAILURE ACUTE [None]
